FAERS Safety Report 7941034-X (Version None)
Quarter: 2011Q4

REPORT INFORMATION
  Report Type: 
  Country: None (occurrence: None)
  Receive Date: 20111128
  Receipt Date: 20111121
  Transmission Date: 20120403
  Serious: Yes (Hospitalization)
  Sender: FDA-Public Use
  Company Number: DE-BRISTOL-MYERS SQUIBB COMPANY-16244865

PATIENT

DRUGS (1)
  1. YERVOY [Suspect]
     Dosage: 3 INFUSION

REACTIONS (1)
  - GASTROINTESTINAL DISORDER [None]
